FAERS Safety Report 23520480 (Version 2)
Quarter: 2024Q1

REPORT INFORMATION
  Report Type: Spontaneous
  Country: AR (occurrence: AR)
  Receive Date: 20240214
  Receipt Date: 20240228
  Transmission Date: 20240409
  Serious: Yes (Other)
  Sender: FDA-Public Use
  Company Number: AR-002147023-NVSC2024AR030474

PATIENT
  Sex: Male

DRUGS (2)
  1. MAYZENT [Suspect]
     Active Substance: SIPONIMOD
     Indication: Secondary progressive multiple sclerosis
     Dosage: 2 MG, QD
     Route: 048
     Dates: start: 20231006
  2. CLONAZEPAM [Concomitant]
     Active Substance: CLONAZEPAM
     Indication: Product used for unknown indication
     Dosage: 0.5 UNK (AT NIGHT)
     Route: 065

REACTIONS (7)
  - Condition aggravated [Unknown]
  - Cognitive disorder [Unknown]
  - Balance disorder [Unknown]
  - Dysgraphia [Unknown]
  - Memory impairment [Unknown]
  - Posture abnormal [Unknown]
  - Gait disturbance [Unknown]
